FAERS Safety Report 5819561-0 (Version None)
Quarter: 2008Q3

REPORT INFORMATION
  Report Type: 
  Country: None (occurrence: None)
  Receive Date: 20080717
  Receipt Date: 20080709
  Transmission Date: 20090109
  Serious: Yes (Hospitalization)
  Sender: FDA-Public Use
  Company Number: CHNY2007JP03736

PATIENT
  Age: 63 Year
  Sex: Male
  Weight: 59 kg

DRUGS (7)
  1. NICOTINELL TTS (NCH) (NICOTINE) TRANS-THERAPEUTIC-SYSTEM [Suspect]
     Indication: SMOKING CESSATION THERAPY
     Dosage: 21 MG, QD, TRANSDERMAL, MCG, 3 PATCES (TEST), TRANSDERMAL, 14 MG, QD, TRANSDERMAL, 7 MG, QD, TRANSDE
     Route: 062
     Dates: start: 20071001, end: 20071001
  2. NICOTINELL TTS (NCH) (NICOTINE) TRANS-THERAPEUTIC-SYSTEM [Suspect]
     Indication: SMOKING CESSATION THERAPY
     Dosage: 21 MG, QD, TRANSDERMAL, MCG, 3 PATCES (TEST), TRANSDERMAL, 14 MG, QD, TRANSDERMAL, 7 MG, QD, TRANSDE
     Route: 062
     Dates: start: 20071006, end: 20071018
  3. NICOTINELL TTS (NCH) (NICOTINE) TRANS-THERAPEUTIC-SYSTEM [Suspect]
     Indication: SMOKING CESSATION THERAPY
     Dosage: 21 MG, QD, TRANSDERMAL, MCG, 3 PATCES (TEST), TRANSDERMAL, 14 MG, QD, TRANSDERMAL, 7 MG, QD, TRANSDE
     Route: 062
     Dates: start: 20071101, end: 20071102
  4. ASPIRIN [Concomitant]
  5. NORVASC [Concomitant]
  6. ENALAPRIL MALEATE [Concomitant]
  7. CARDENALINE (DOXAZOSIN MESILATE) [Concomitant]

REACTIONS (4)
  - CONCOMITANT DISEASE AGGRAVATED [None]
  - DIPLOPIA [None]
  - EYELID PTOSIS [None]
  - MYASTHENIA GRAVIS [None]
